FAERS Safety Report 7654073-3 (Version None)
Quarter: 2011Q3

REPORT INFORMATION
  Report Type: 
  Country: None (occurrence: None)
  Receive Date: 20110803
  Receipt Date: 20110721
  Transmission Date: 20111222
  Serious: No
  Sender: FDA-Public Use
  Company Number: US-BAYER-2011-064378

PATIENT
  Sex: Male

DRUGS (2)
  1. ALEVE (CAPLET) [Suspect]
     Dosage: 2000 MG, FREQUENCY NOT SPECIFIED
     Route: 048
     Dates: start: 20110721
  2. ALEVE (CAPLET) [Suspect]
     Indication: PAIN
     Dosage: 1000 MG, FREQUENCY NOT SPECIFIED
     Route: 048
     Dates: start: 20110721

REACTIONS (1)
  - NO ADVERSE EVENT [None]
